FAERS Safety Report 18466609 (Version 1)
Quarter: 2020Q4

REPORT INFORMATION
  Report Type: Spontaneous
  Country: US (occurrence: US)
  Receive Date: 20201104
  Receipt Date: 20201104
  Transmission Date: 20210114
  Serious: No
  Sender: FDA-Public Use
  Company Number: US-JNJFOC-20201044637

PATIENT
  Age: 69 Year
  Sex: Female
  Weight: 77.18 kg

DRUGS (1)
  1. IMODIUM MULTI-SYMPTOM RELIEF [Suspect]
     Active Substance: DIMETHICONE\LOPERAMIDE HYDROCHLORIDE
     Indication: ABDOMINAL DISTENSION
     Dosage: 2 TABLETS TWICE A DAY.
     Route: 048
     Dates: start: 20201020

REACTIONS (1)
  - Drug ineffective [Unknown]
